FAERS Safety Report 8075485-2 (Version None)
Quarter: 2012Q1

REPORT INFORMATION
  Report Type: 
  Country: None (occurrence: None)
  Receive Date: 20120127
  Receipt Date: 20120123
  Transmission Date: 20120608
  Serious: Yes (Other)
  Sender: FDA-Public Use
  Company Number: US-PFIZER INC-2012018728

PATIENT
  Sex: Female
  Weight: 81.633 kg

DRUGS (21)
  1. CELEBREX [Suspect]
     Indication: ARTHRITIS
     Dosage: 200 MG, 2X/DAY
     Dates: start: 19990101
  2. FENOFIBRATE [Concomitant]
     Indication: BLOOD CHOLESTEROL ABNORMAL
     Dosage: 160 MG, DAILY
  3. VITAMIN D [Concomitant]
     Dosage: UNK
  4. PRILOSEC [Concomitant]
     Dosage: 20 MG, 2X/DAY
  5. ALLEGRA [Concomitant]
     Indication: HYPERSENSITIVITY
     Dosage: 180 MG, AS NEEDED
  6. VITAMIN E [Concomitant]
     Dosage: UNK
  7. CALCIUM [Concomitant]
     Dosage: UNK
  8. NEURONTIN [Suspect]
     Indication: EXOSTOSIS
     Dosage: 300 MG, FIVE TO SIX TIMES A DAY
  9. CELEBREX [Suspect]
     Dosage: 200 MG, DAILY
  10. ENALAPRIL [Concomitant]
     Dosage: 5 MG, DAILY
  11. DURAGESIC-100 [Concomitant]
     Indication: PAIN
     Dosage: EVERY 72 HOURS
     Route: 062
  12. FISH OIL [Concomitant]
     Dosage: UNK
  13. LIPITOR [Suspect]
     Indication: BLOOD CHOLESTEROL ABNORMAL
     Dosage: 40 MG, DAILY
  14. NEURONTIN [Suspect]
     Dosage: UNK
  15. MULTI-VITAMINS [Concomitant]
     Dosage: UNK
  16. NEURONTIN [Suspect]
     Indication: BACK PAIN
     Dosage: 300 MG, 2X/DAY
  17. TRAMADOL [Concomitant]
     Dosage: 50 MG, UNK
  18. DICYCLOMINE [Concomitant]
     Dosage: 20 MG, 3X/DAY
  19. LASIX [Concomitant]
     Dosage: 40 MG, UNK
  20. PROZAC [Concomitant]
     Dosage: 40 MG, DAILY
  21. METFORMIN [Concomitant]
     Indication: DIABETES MELLITUS
     Dosage: 1000 MG, 2X/DAY

REACTIONS (2)
  - WEIGHT DECREASED [None]
  - WEIGHT INCREASED [None]
